FAERS Safety Report 6726669-4 (Version None)
Quarter: 2010Q2

REPORT INFORMATION
  Report Type: 
  Country: None (occurrence: None)
  Receive Date: 20100514
  Receipt Date: 20100505
  Transmission Date: 20101027
  Serious: Yes (Hospitalization)
  Sender: FDA-Public Use
  Company Number: CZ-ABBOTT-10P-217-0642676-00

PATIENT
  Sex: Female

DRUGS (5)
  1. HUMIRA [Suspect]
     Indication: ANKYLOSING SPONDYLITIS
     Route: 058
  2. ANOPYRIN [Concomitant]
     Indication: DRUG USE FOR UNKNOWN INDICATION
  3. SORTIS [Concomitant]
     Indication: DRUG USE FOR UNKNOWN INDICATION
  4. LETROX [Concomitant]
     Indication: DRUG USE FOR UNKNOWN INDICATION
  5. AULIN [Concomitant]
     Indication: DRUG USE FOR UNKNOWN INDICATION

REACTIONS (2)
  - THYROID ADENOMA [None]
  - TOXIC NODULAR GOITRE [None]
